FAERS Safety Report 8305201-8 (Version None)
Quarter: 2012Q2

REPORT INFORMATION
  Report Type: 
  Country: None (occurrence: None)
  Receive Date: 20120423
  Receipt Date: 20120409
  Transmission Date: 20120825
  Serious: No
  Sender: FDA-Public Use
  Company Number: US-ENDO PHARMACEUTICALS INC.-OPCR20120156

PATIENT
  Sex: Female

DRUGS (2)
  1. OPANA ER [Suspect]
     Indication: BACK INJURY
     Route: 048
     Dates: start: 20120301
  2. OPANA ER [Concomitant]
     Indication: NECK INJURY
     Route: 048
     Dates: end: 20120301

REACTIONS (6)
  - ABDOMINAL PAIN UPPER [None]
  - STOMATITIS [None]
  - ORAL PAIN [None]
  - FOREIGN BODY [None]
  - DRUG INEFFECTIVE [None]
  - ORAL MUCOSAL ERYTHEMA [None]
